FAERS Safety Report 19436857 (Version 2)
Quarter: 2021Q2

REPORT INFORMATION
  Report Type: Report from Study
  Country: CO (occurrence: CO)
  Receive Date: 20210618
  Receipt Date: 20210630
  Transmission Date: 20210717
  Serious: Yes (Hospitalization, Other)
  Sender: FDA-Public Use
  Company Number: PHHY2018CO008545

PATIENT
  Age: 71 Year
  Sex: Female
  Weight: 78 kg

DRUGS (11)
  1. XOLAIR [Suspect]
     Active Substance: OMALIZUMAB
     Indication: ASTHMA
     Dosage: 600 MG, QMO
     Route: 058
     Dates: start: 201810
  2. XOLAIR [Suspect]
     Active Substance: OMALIZUMAB
     Indication: ASTHMA
     Dosage: 600 MG, QMO
     Route: 058
     Dates: start: 20140714, end: 201610
  3. XOLAIR [Suspect]
     Active Substance: OMALIZUMAB
     Dosage: 300 MG, BIW, EVERY 15 DAYS
     Route: 058
     Dates: start: 201708
  4. XOLAIR [Suspect]
     Active Substance: OMALIZUMAB
     Dosage: 300 MG, QMO
     Route: 058
  5. CALCITRIOL. [Concomitant]
     Active Substance: CALCITRIOL
     Indication: THYROID DISORDER
     Dosage: 1 DF, QD
     Route: 065
  6. XOLAIR [Suspect]
     Active Substance: OMALIZUMAB
     Indication: ASTHMA
  7. EUTIROX [Concomitant]
     Active Substance: LEVOTHYROXINE SODIUM
     Indication: THYROID DISORDER
     Route: 065
  8. HYDROCHLOROTHIAZIDE. [Concomitant]
     Active Substance: HYDROCHLOROTHIAZIDE
     Indication: HYPERTENSION
     Dosage: 25 MG, QD
     Route: 065
  9. CALCIUM [Concomitant]
     Active Substance: CALCIUM
     Indication: THYROID DISORDER
     Dosage: UNK
     Route: 065
  10. LOSARTAN. [Suspect]
     Active Substance: LOSARTAN
     Indication: HYPERTENSION
     Dosage: 50 MG, Q12H
     Route: 048
  11. XOLAIR [Suspect]
     Active Substance: OMALIZUMAB
     Dosage: 600 MG, QMO
     Route: 058
     Dates: start: 20190124

REACTIONS (10)
  - Asthmatic crisis [Recovering/Resolving]
  - COVID-19 [Recovering/Resolving]
  - Influenza [Recovered/Resolved]
  - Choking [Recovered/Resolved]
  - Oxygen saturation decreased [Unknown]
  - Diabetes mellitus [Unknown]
  - Asthma [Unknown]
  - Dyspnoea [Recovered/Resolved]
  - Pneumonia [Recovered/Resolved]
  - Illness [Unknown]

NARRATIVE: CASE EVENT DATE: 20180606
